FAERS Safety Report 8024616-9 (Version None)
Quarter: 2011Q4

REPORT INFORMATION
  Report Type: 
  Country: None (occurrence: None)
  Receive Date: 20111130
  Receipt Date: 20110201
  Transmission Date: 20120403
  Serious: Yes (Other)
  Sender: FDA-Public Use
  Company Number: PHHY2011US02571

PATIENT
  Sex: Male

DRUGS (8)
  1. FUROSEMIDE [Suspect]
     Indication: HYPERTENSION
     Dosage: ORAL
     Route: 048
  2. NEBIVOLOL HCL [Suspect]
     Indication: HYPERTENSION
  3. CATAPRES-TTS-1 [Suspect]
     Indication: HYPERTENSION
     Dosage: TRANSDERMAL
     Route: 062
  4. POTASSIUM CHLORIDE [Concomitant]
  5. LISINOPRIL [Suspect]
     Indication: HYPERTENSION
     Dosage: ORAL
     Route: 048
  6. TEKTURNA [Suspect]
     Indication: HYPERTENSION
  7. MINOXIDIL [Suspect]
     Indication: HYPERTENSION
     Dosage: ORAL
     Route: 048
  8. CRESTOR [Concomitant]

REACTIONS (4)
  - DRUG INEFFECTIVE [None]
  - BLOOD PRESSURE INADEQUATELY CONTROLLED [None]
  - ABDOMINAL DISTENSION [None]
  - BLOOD PRESSURE INCREASED [None]
